FAERS Safety Report 8072071-5 (Version None)
Quarter: 2012Q1

REPORT INFORMATION
  Report Type: 
  Country: None (occurrence: None)
  Receive Date: 20120126
  Receipt Date: 20120118
  Transmission Date: 20120608
  Serious: Yes (Other)
  Sender: FDA-Public Use
  Company Number: US-CELGENEUS-163-21880-11112275

PATIENT
  Sex: Male
  Weight: 81.72 kg

DRUGS (6)
  1. AVALIDE [Concomitant]
     Dosage: 370 MILLIGRAM
     Route: 065
     Dates: start: 20090201
  2. REVLIMID [Suspect]
     Dosage: 5 MILLIGRAM
     Route: 048
     Dates: start: 20111101
  3. FINASTERIDE [Concomitant]
     Route: 065
  4. HYDROCHLOROTHIAZIDE [Concomitant]
     Dosage: 12.5 MILLIGRAM
     Route: 065
     Dates: start: 20090201
  5. REVLIMID [Suspect]
     Indication: PROSTATE CANCER
     Dosage: 5 MILLIGRAM
     Route: 048
     Dates: start: 20111112, end: 20111115
  6. BICALUTAMIDE [Concomitant]
     Indication: PROSTATE CANCER
     Dosage: 50 MILLIGRAM
     Route: 065
     Dates: start: 20110701, end: 20111129

REACTIONS (5)
  - PRURITUS [None]
  - ABDOMINAL PAIN [None]
  - LYMPHADENOPATHY [None]
  - CONSTIPATION [None]
  - RASH [None]
